FAERS Safety Report 7067957-4 (Version None)
Quarter: 2010Q4

REPORT INFORMATION
  Report Type: 
  Country: None (occurrence: None)
  Receive Date: 20101028
  Receipt Date: 20101025
  Transmission Date: 20110411
  Serious: Yes (Other)
  Sender: FDA-Public Use
  Company Number: FR-SANOFI-AVENTIS-2010SA065014

PATIENT
  Age: 88 Year
  Sex: Female

DRUGS (3)
  1. PLAQUENIL [Suspect]
     Indication: POLYMYALGIA RHEUMATICA
     Route: 048
     Dates: start: 20070501, end: 20100826
  2. PANTOPRAZOLE [Suspect]
     Route: 048
     Dates: start: 20080401
  3. ASPIRIN [Concomitant]
     Indication: PRODUCT USED FOR UNKNOWN INDICATION
     Route: 048
     Dates: start: 20090501

REACTIONS (2)
  - ABNORMAL BEHAVIOUR [None]
  - HYPONATRAEMIA [None]
